FAERS Safety Report 17825209 (Version 1)
Quarter: 2020Q2

REPORT INFORMATION
  Report Type: Other
  Country: FR (occurrence: FR)
  Receive Date: 20200526
  Receipt Date: 20200526
  Transmission Date: 20200714
  Serious: Yes (Hospitalization)
  Sender: FDA-Public Use
  Company Number: FR-CADILA HEALTHCARE LIMITED-FR-ZYDUS-051153

PATIENT

DRUGS (9)
  1. PARACETAMOL [Suspect]
     Active Substance: ACETAMINOPHEN
     Indication: SUICIDE ATTEMPT
     Dosage: 8 GRAM
     Route: 048
     Dates: start: 20200325
  2. CETIRIZINE [Suspect]
     Active Substance: CETIRIZINE HYDROCHLORIDE
     Indication: SUICIDE ATTEMPT
     Dosage: 220 MILLIGRAM
     Route: 048
     Dates: start: 20200325
  3. TIORFAN [Suspect]
     Active Substance: RACECADOTRIL
     Indication: SUICIDE ATTEMPT
     Dosage: 12 DOSAGE FORM
     Route: 048
     Dates: start: 20200325
  4. ESOMEPRAZOLE. [Suspect]
     Active Substance: ESOMEPRAZOLE MAGNESIUM
     Indication: SUICIDE ATTEMPT
     Dosage: 840 MILLIGRAM
     Route: 048
     Dates: start: 20200325
  5. AMOXICILLIN. [Suspect]
     Active Substance: AMOXICILLIN
     Indication: SUICIDE ATTEMPT
     Dosage: 7 GRAM
     Route: 048
     Dates: start: 20200325
  6. IBUPROFENE [Suspect]
     Active Substance: IBUPROFEN
     Indication: SUICIDE ATTEMPT
     Dosage: 20 DOSAGE FORM
     Route: 048
     Dates: start: 20200325
  7. DESLORATADINE. [Suspect]
     Active Substance: DESLORATADINE
     Indication: SUICIDE ATTEMPT
     Dosage: 75 MILLIGRAM
     Route: 048
     Dates: start: 20200325
  8. MAXILASE [Suspect]
     Active Substance: PANCRELIPASE
     Indication: SUICIDE ATTEMPT
     Dosage: 15 DOSAGE FORM
     Route: 065
     Dates: start: 20200325
  9. ALCOOL [Concomitant]
     Active Substance: ALCOHOL
     Indication: SUICIDE ATTEMPT
     Dosage: UNK

REACTIONS (4)
  - Vomiting [Recovered/Resolved]
  - Abdominal pain upper [Recovered/Resolved]
  - Drug level increased [Recovered/Resolved]
  - Intentional overdose [Recovered/Resolved]

NARRATIVE: CASE EVENT DATE: 20200325
